FAERS Safety Report 22069174 (Version 1)
Quarter: 2023Q1

REPORT INFORMATION
  Report Type: Spontaneous
  Country: BR (occurrence: None)
  Receive Date: 20230307
  Receipt Date: 20230307
  Transmission Date: 20230417
  Serious: Yes (Hospitalization)
  Sender: FDA-Public Use
  Company Number: 2023A053448

PATIENT
  Age: 20929 Day
  Sex: Female
  Weight: 69 kg

DRUGS (12)
  1. TAGRISSO [Suspect]
     Active Substance: OSIMERTINIB
     Indication: Neoplasm malignant
     Dosage: A TABLET AT 16 P.M
     Route: 048
     Dates: start: 20230116, end: 20230120
  2. PREGABALIN [Suspect]
     Active Substance: PREGABALIN
     Indication: Anxiety
     Dosage: A TABLET
     Route: 048
     Dates: start: 20230116, end: 20230128
  3. NITROFURANTOIN [Suspect]
     Active Substance: NITROFURANTOIN
     Indication: Antibiotic therapy
     Dosage: A CAPSULE
     Route: 048
     Dates: start: 20230116, end: 20230120
  4. ALPRAZOLAM [Suspect]
     Active Substance: ALPRAZOLAM
     Indication: Anxiety
     Dosage: A TABLET
     Route: 048
     Dates: start: 20230116, end: 20230128
  5. PURAN [Suspect]
     Active Substance: LEVOTHYROXINE SODIUM
     Indication: Hypothyroidism
     Dosage: A TABLET DURING FAST
     Route: 048
     Dates: start: 20230116, end: 20230129
  6. METAMIZOLE SODIUM [Suspect]
     Active Substance: METAMIZOLE SODIUM
     Indication: Analgesic therapy
     Dosage: 40 DROPS
     Route: 048
     Dates: start: 20230116, end: 20230128
  7. DECADRON [Suspect]
     Active Substance: DEXAMETHASONE
     Indication: Glucocorticoids abnormal
     Dosage: HALF A TABLET
     Route: 048
     Dates: start: 20230116, end: 20230120
  8. BUTYLSCOPOLAMINE BROMIDE [Suspect]
     Active Substance: BUTYLSCOPOLAMINE BROMIDE
     Indication: Pain
     Dosage: 10.0MG AS REQUIRED
  9. PRISTIQ EXTENDED-RELEASE [Suspect]
     Active Substance: DESVENLAFAXINE SUCCINATE
     Indication: Depression
     Dosage: A TABLET
     Route: 048
     Dates: start: 20230116, end: 20230129
  10. XARELTO [Suspect]
     Active Substance: RIVAROXABAN
     Dosage: A TABLET
  11. MACRODANTIN [Suspect]
     Active Substance: NITROFURANTOIN
     Dosage: A TABLET
  12. MIRABEGRON [Suspect]
     Active Substance: MIRABEGRON
     Indication: Hypertonic bladder
     Dosage: 1 TABLET 50 MG AT NIGHT
     Route: 048
     Dates: start: 20230116, end: 20230128

REACTIONS (3)
  - Gait disturbance [Recovered/Resolved]
  - Visual impairment [Recovered/Resolved]
  - Hyperaemia [Recovered/Resolved]

NARRATIVE: CASE EVENT DATE: 20230116
